FAERS Safety Report 18247218 (Version 1)
Quarter: 2020Q3

REPORT INFORMATION
  Report Type: Report from Study
  Country: BR (occurrence: BR)
  Receive Date: 20200909
  Receipt Date: 20200909
  Transmission Date: 20201103
  Serious: Yes (Hospitalization)
  Sender: FDA-Public Use
  Company Number: PHHY2019BR207736

PATIENT
  Sex: Female

DRUGS (3)
  1. XOLAIR [Suspect]
     Active Substance: OMALIZUMAB
     Indication: CHRONIC SPONTANEOUS URTICARIA
     Dosage: UNK
     Route: 065
  2. DESLORATADINE. [Suspect]
     Active Substance: DESLORATADINE
     Indication: PRODUCT USED FOR UNKNOWN INDICATION
     Route: 065
  3. EBASTEL [Concomitant]
     Active Substance: EBASTINE
     Indication: PRODUCT USED FOR UNKNOWN INDICATION
     Route: 065

REACTIONS (11)
  - Dyspnoea [Unknown]
  - Malaise [Unknown]
  - Urticaria [Unknown]
  - Laryngeal oedema [Unknown]
  - Eye swelling [Unknown]
  - Skin burning sensation [Unknown]
  - Wrong technique in product usage process [Unknown]
  - Scratch [Unknown]
  - Burning sensation [Unknown]
  - Mouth swelling [Unknown]
  - Pruritus [Unknown]
